FAERS Safety Report 25457640 (Version 1)
Quarter: 2025Q2

REPORT INFORMATION
  Report Type: Spontaneous
  Country: CN (occurrence: CN)
  Receive Date: 20250619
  Receipt Date: 20250619
  Transmission Date: 20250717
  Serious: Yes (Other)
  Sender: BEIGENE
  Company Number: CN-BEIGENE-BGN-2025-009560

PATIENT
  Age: 63 Year
  Weight: 55.4 kg

DRUGS (8)
  1. TISLELIZUMAB [Suspect]
     Active Substance: TISLELIZUMAB
     Indication: Malignant mediastinal neoplasm
     Dosage: 200 MILLIGRAM, Q3WK, D3
  2. TISLELIZUMAB [Suspect]
     Active Substance: TISLELIZUMAB
     Dosage: 200 MILLIGRAM, Q3WK, D3
     Route: 041
  3. TISLELIZUMAB [Suspect]
     Active Substance: TISLELIZUMAB
     Dosage: 200 MILLIGRAM, Q3WK, D3
     Route: 041
  4. TISLELIZUMAB [Suspect]
     Active Substance: TISLELIZUMAB
     Dosage: 200 MILLIGRAM, Q3WK, D3
  5. ETOPOSIDE [Concomitant]
     Active Substance: ETOPOSIDE
     Indication: Malignant mediastinal neoplasm
     Dosage: 150 MILLIGRAM, Q3WK, D1-D3
     Route: 041
  6. ETOPOSIDE [Concomitant]
     Active Substance: ETOPOSIDE
     Dosage: 150 MILLIGRAM, Q3WK, D1-D3
  7. CISPLATIN [Concomitant]
     Active Substance: CISPLATIN
     Indication: Malignant mediastinal neoplasm
     Dosage: 40 MILLIGRAM, Q3WK, D1; 30 MILLIGRAM, Q3WK, D2-D3
     Route: 041
  8. CISPLATIN [Concomitant]
     Active Substance: CISPLATIN
     Dosage: 40 MILLIGRAM, Q3WK, D1; 30 MILLIGRAM, Q3WK, D2-D3

REACTIONS (2)
  - Granulocyte count decreased [Recovering/Resolving]
  - White blood cell count decreased [Not Recovered/Not Resolved]
